FAERS Safety Report 23623384 (Version 2)
Quarter: 2024Q1

REPORT INFORMATION
  Report Type: Spontaneous
  Country: SI (occurrence: SI)
  Receive Date: 20240312
  Receipt Date: 20240313
  Transmission Date: 20240410
  Serious: Yes (Other)
  Sender: FDA-Public Use
  Company Number: SI-JNJFOC-20240308186

PATIENT
  Age: 49 Year
  Sex: Male
  Weight: 100 kg

DRUGS (8)
  1. STELARA [Suspect]
     Active Substance: USTEKINUMAB
     Indication: Psoriasis
     Route: 058
     Dates: start: 2013
  2. STELARA [Suspect]
     Active Substance: USTEKINUMAB
     Route: 058
     Dates: start: 2014
  3. STELARA [Suspect]
     Active Substance: USTEKINUMAB
     Route: 058
     Dates: end: 202306
  4. PERINDOPRIL [Concomitant]
     Active Substance: PERINDOPRIL
  5. INDAPAMIDE [Concomitant]
     Active Substance: INDAPAMIDE
  6. NEBIVOLOL [Concomitant]
     Active Substance: NEBIVOLOL
  7. SPIRONOLACTONE [Concomitant]
     Active Substance: SPIRONOLACTONE
  8. DABIGATRAN ETEXILATE [Concomitant]
     Active Substance: DABIGATRAN ETEXILATE

REACTIONS (7)
  - Cholangiocarcinoma [Unknown]
  - Metastases to lymph nodes [Unknown]
  - Arrhythmia [Unknown]
  - Osteoarthritis [Unknown]
  - Hypertension [Unknown]
  - COVID-19 [Unknown]
  - Psoriasis [Unknown]

NARRATIVE: CASE EVENT DATE: 20170101
